FAERS Safety Report 5248289-3 (Version None)
Quarter: 2007Q1

REPORT INFORMATION
  Report Type: 
  Country: None (occurrence: None)
  Receive Date: 20070227
  Receipt Date: 20061122
  Transmission Date: 20070707
  Serious: No
  Sender: FDA-Public Use
  Company Number: US-BRISTOL-MYERS SQUIBB COMPANY-13612718

PATIENT
  Age: 59 Year
  Sex: Female

DRUGS (2)
  1. GLUCOPHAGE [Suspect]
     Dates: end: 20060801
  2. BYETTA [Suspect]
     Indication: DIABETES MELLITUS NON-INSULIN-DEPENDENT
     Dosage: INITIAL DOSE OF 5 MCG (0.25MG/ML) , INCREASED TO 10 MCG ON SEP-06
     Route: 058
     Dates: start: 20060801

REACTIONS (2)
  - NAUSEA [None]
  - VOMITING [None]
